FAERS Safety Report 5562516-4 (Version None)
Quarter: 2007Q4

REPORT INFORMATION
  Report Type: 
  Country: None (occurrence: None)
  Receive Date: 20071217
  Receipt Date: 20071206
  Transmission Date: 20080405
  Serious: Yes (Hospitalization)
  Sender: FDA-Public Use
  Company Number: CN-BAYER-200717685GPV

PATIENT
  Age: 58 Year
  Sex: Female

DRUGS (1)
  1. ANGELIQ [Suspect]
     Indication: HOT FLUSH
     Route: 048
     Dates: start: 20061027, end: 20070215

REACTIONS (3)
  - BREAST PAIN [None]
  - BREAST SWELLING [None]
  - ENDOMETRIAL CANCER STAGE I [None]
